FAERS Safety Report 6735677-9 (Version None)
Quarter: 2010Q2

REPORT INFORMATION
  Report Type: 
  Country: None (occurrence: None)
  Receive Date: 20100521
  Receipt Date: 20100512
  Transmission Date: 20101027
  Serious: Yes (Other)
  Sender: FDA-Public Use
  Company Number: PHHY2010FR30608

PATIENT
  Age: 40 Year
  Sex: Male
  Weight: 90 kg

DRUGS (6)
  1. TRILEPTAL [Suspect]
     Indication: EPILEPSY
     Dosage: 300 MG, 3 DF BID
     Dates: start: 20100101
  2. TRILEPTAL [Suspect]
     Dosage: 600 MG, QD
  3. TRILEPTAL [Suspect]
     Dosage: 1800 MG/DAY
  4. TRILEPTAL [Suspect]
     Dosage: 1200 MG/DAY
  5. LORAZEPAM [Concomitant]
     Indication: AGITATION
     Dosage: 2 DF, BID
  6. SOLMUCOL [Concomitant]

REACTIONS (3)
  - EPILEPSY [None]
  - HYPERAMMONAEMIA [None]
  - METABOLIC ACIDOSIS [None]
